FAERS Safety Report 8621657 (Version 2)
Quarter: 2014Q1

REPORT INFORMATION
  Report Type: Spontaneous
  Country: US (occurrence: None)
  Receive Date: 20120323
  Receipt Date: 20130305
  Transmission Date: 20141002
  Serious: Yes (Hospitalization)
  Sender: FDA-Public Use
  Company Number: 163-21880-11073141

PATIENT
  Age: 80 Year
  Sex: Female

DRUGS (6)
  1. REVLIMID [Suspect]
     Indication: PLASMA CELL MYELOMA
     Dosage: 10 MG, 21 IN 28 D, PO
     Route: 048
     Dates: start: 20110312, end: 20110727
  2. NORVASC [Concomitant]
  3. AVALIDE [Concomitant]
  4. NEXIUM (ESOMEPRAZOLE) [Concomitant]
  5. STATIN (CHOLESTEROL- AND TRIGLYCERIDE REDUCERS) [Concomitant]
  6. ASA (ACETYLSALICYCLIC ACID) [Concomitant]

REACTIONS (1)
  - Deep vein thrombosis [None]
